FAERS Safety Report 23154563 (Version 2)
Quarter: 2023Q4

REPORT INFORMATION
  Report Type: Spontaneous
  Country: US (occurrence: None)
  Receive Date: 20231107
  Receipt Date: 20231129
  Transmission Date: 20240109
  Serious: No
  Sender: FDA-Public Use
  Company Number: 2023A246867

PATIENT

DRUGS (1)
  1. BYDUREON BCISE [Suspect]
     Active Substance: EXENATIDE
     Dosage: 2.0MG UNKNOWN

REACTIONS (4)
  - Hypoacusis [Unknown]
  - Visual impairment [Unknown]
  - Incorrect dose administered [Unknown]
  - Device delivery system issue [Unknown]
